FAERS Safety Report 18807948 (Version 1)
Quarter: 2021Q1

REPORT INFORMATION
  Report Type: Spontaneous
  Country: FR (occurrence: FR)
  Receive Date: 20210129
  Receipt Date: 20210129
  Transmission Date: 20210419
  Serious: Yes (Hospitalization, Other)
  Sender: FDA-Public Use
  Company Number: FR-GLAXOSMITHKLINE-FR2021018922

PATIENT
  Age: 6 Year
  Sex: Female
  Weight: 19 kg

DRUGS (1)
  1. ZOVIRAX [Suspect]
     Active Substance: ACYCLOVIR
     Indication: INFECTION
     Dosage: 200 MG SINGLE (TOTAL)
     Route: 041
     Dates: start: 20201119

REACTIONS (2)
  - Extravasation [Recovered/Resolved]
  - Necrosis [Recovering/Resolving]

NARRATIVE: CASE EVENT DATE: 20201119
